FAERS Safety Report 25235900 (Version 1)
Quarter: 2025Q2

REPORT INFORMATION
  Report Type: Spontaneous
  Country: DE (occurrence: DE)
  Receive Date: 20250424
  Receipt Date: 20250424
  Transmission Date: 20250717
  Serious: Yes (Other)
  Sender: ALEXION PHARMACEUTICALS
  Company Number: DE-PFIZER INC-202300396779

PATIENT
  Age: 53 Year

DRUGS (4)
  1. ROSUVASTATIN [Suspect]
     Active Substance: ROSUVASTATIN
  2. LORLATINIB [Suspect]
     Active Substance: LORLATINIB
     Indication: Lung adenocarcinoma
  3. ATORVASTATIN [Suspect]
     Active Substance: ATORVASTATIN
  4. SIMVASTATIN [Suspect]
     Active Substance: SIMVASTATIN

REACTIONS (7)
  - Coronary artery disease [Unknown]
  - Myalgia [Unknown]
  - Arthralgia [Unknown]
  - Hyperlipidaemia [Unknown]
  - Blood creatine phosphokinase increased [Unknown]
  - Weight increased [Unknown]
  - Glycosylated haemoglobin increased [Unknown]
